FAERS Safety Report 13152811 (Version 1)
Quarter: 2017Q1

REPORT INFORMATION
  Report Type: Spontaneous
  Country: US (occurrence: US)
  Receive Date: 20170126
  Receipt Date: 20170126
  Transmission Date: 20170428
  Serious: Yes (Other)
  Sender: FDA-Public Use
  Company Number: US-BEH-2017077469

PATIENT
  Sex: Male

DRUGS (2)
  1. HIZENTRA [Suspect]
     Active Substance: HUMAN IMMUNOGLOBULIN G
     Indication: PRODUCT USED FOR UNKNOWN INDICATION
     Dosage: ONE DOSE
     Route: 065
     Dates: start: 201701
  2. HIZENTRA [Suspect]
     Active Substance: HUMAN IMMUNOGLOBULIN G
     Dosage: ONE DOSE
     Route: 065
     Dates: start: 201701

REACTIONS (4)
  - International normalised ratio increased [Unknown]
  - Blood pressure systolic decreased [Unknown]
  - Liver function test increased [Unknown]
  - Polydipsia [Unknown]

NARRATIVE: CASE EVENT DATE: 20170118
